FAERS Safety Report 17941597 (Version 1)
Quarter: 2020Q2

REPORT INFORMATION
  Report Type: Spontaneous
  Country: US (occurrence: US)
  Receive Date: 20200625
  Receipt Date: 20200625
  Transmission Date: 20200714
  Serious: No
  Sender: FDA-Public Use
  Company Number: US-SA-2020SA159964

PATIENT

DRUGS (1)
  1. DUPIXENT [Suspect]
     Active Substance: DUPILUMAB
     Indication: DERMATITIS ATOPIC
     Dosage: 300 MG, QOW
     Route: 058

REACTIONS (5)
  - Asthenia [Unknown]
  - Musculoskeletal stiffness [Unknown]
  - Bedridden [Unknown]
  - Urinary incontinence [Unknown]
  - Malaise [Unknown]

NARRATIVE: CASE EVENT DATE: 20200617
